FAERS Safety Report 20013218 (Version 2)
Quarter: 2021Q4

REPORT INFORMATION
  Report Type: Report from Study
  Country: NL (occurrence: None)
  Receive Date: 20211029
  Receipt Date: 20211215
  Transmission Date: 20220303
  Serious: Yes (Other)
  Sender: FDA-Public Use
  Company Number: NL-EISAI MEDICAL RESEARCH-EC-2021-102332

PATIENT
  Age: 73 Year
  Sex: Male

DRUGS (2)
  1. LENVATINIB [Suspect]
     Active Substance: LENVATINIB
     Indication: Pleural mesothelioma malignant
     Route: 048
     Dates: start: 20210329, end: 20210410
  2. KEYTRUDA [Suspect]
     Active Substance: PEMBROLIZUMAB
     Indication: Pleural mesothelioma malignant
     Route: 041
     Dates: start: 20210329

REACTIONS (1)
  - Transient ischaemic attack [Recovered/Resolved]

NARRATIVE: CASE EVENT DATE: 20210411
